FAERS Safety Report 10175051 (Version 1)
Quarter: 2014Q2

REPORT INFORMATION
  Report Type: Spontaneous
  Country: US (occurrence: US)
  Receive Date: 20140515
  Receipt Date: 20140515
  Transmission Date: 20141212
  Serious: Yes (Other)
  Sender: FDA-Public Use
  Company Number: US-ELI_LILLY_AND_COMPANY-US201405001696

PATIENT
  Age: 57 Year
  Sex: Female

DRUGS (1)
  1. EFFIENT [Suspect]
     Indication: CARDIAC REHABILITATION THERAPY
     Dosage: 10 MG, QD
     Route: 065
     Dates: start: 201208

REACTIONS (1)
  - Cerebrovascular accident [Unknown]
